FAERS Safety Report 18455833 (Version 10)
Quarter: 2021Q2

REPORT INFORMATION
  Report Type: Report from Study
  Country: CN (occurrence: CN)
  Receive Date: 20201102
  Receipt Date: 20210629
  Transmission Date: 20210717
  Serious: Yes (Death, Hospitalization)
  Sender: FDA-Public Use
  Company Number: CN-ROCHE-2702134

PATIENT
  Age: 62 Year
  Sex: Male
  Weight: 80 kg

DRUGS (18)
  1. RECOMBINANT HUMAN ERYTHROPOIETIN [Concomitant]
     Active Substance: ERYTHROPOIETIN
     Indication: ANAEMIA
     Dates: start: 20201124, end: 20201126
  2. SMECTITE [Concomitant]
     Active Substance: MONTMORILLONITE
     Dates: start: 20201124, end: 20201126
  3. BEVACIZUMAB. [Suspect]
     Active Substance: BEVACIZUMAB
     Indication: HEPATOCELLULAR CARCINOMA
     Dosage: DOSE OF LAST BEVACIZUMAB ADMINISTERED PRIOR TO AE/SAE ONSET: 1125 MG?DATE OF MOST RECENT DOSE OF BEV
     Route: 042
     Dates: start: 20190314
  4. AMLODIPINE BESYLATE. [Concomitant]
     Active Substance: AMLODIPINE BESYLATE
     Indication: HYPERTENSION
     Dates: start: 20200423, end: 20201122
  5. OXYCODONE HYDROCHLORIDE. [Concomitant]
     Active Substance: OXYCODONE HYDROCHLORIDE
     Indication: ANALGESIC THERAPY
     Dates: start: 20201124, end: 20201126
  6. HUMALOG [Concomitant]
     Active Substance: INSULIN LISPRO
     Indication: DIABETES MELLITUS
     Dates: start: 201901, end: 20201114
  7. NORFLOXACIN [Concomitant]
     Active Substance: NORFLOXACIN
     Dates: start: 20201107, end: 20201109
  8. ATEZOLIZUMAB. [Suspect]
     Active Substance: ATEZOLIZUMAB
     Indication: HEPATOCELLULAR CARCINOMA
     Dosage: DATE OF MOST RECENT DOSE OF ATEZOLIZUMAB PRIOR TO AE/SAE ONSET: 2 OCT 2020
     Route: 042
     Dates: start: 20190314
  9. LOPERAMIDE HYDROCHLORIDE. [Concomitant]
     Active Substance: LOPERAMIDE HYDROCHLORIDE
     Dates: start: 20201107, end: 20201108
  10. MEGESTROL [Concomitant]
     Active Substance: MEGESTROL
     Dates: start: 20201111, end: 20201120
  11. TORASEMIDE [Concomitant]
     Active Substance: TORSEMIDE
     Dates: start: 20201123, end: 20201126
  12. HUMAN SERUM ALBUMIN [Concomitant]
     Active Substance: ALBUMIN HUMAN
     Dates: start: 20201123, end: 20201126
  13. PANTOPRAZOLE SODIUM. [Concomitant]
     Active Substance: PANTOPRAZOLE SODIUM
     Dates: start: 20201124, end: 20201126
  14. INSULIN INJECTION [Concomitant]
     Active Substance: INSULIN NOS
     Dates: start: 20201123, end: 20201126
  15. CALCIUM GLUCONATE. [Concomitant]
     Active Substance: CALCIUM GLUCONATE
     Dates: start: 20201125, end: 20201125
  16. LACTOBACILLUS [Concomitant]
     Active Substance: LACTOBACILLUS ACIDOPHILUS
     Dates: start: 20201027
  17. BENAZEPRIL HYDROCHLORIDE. [Concomitant]
     Active Substance: BENAZEPRIL HYDROCHLORIDE
     Indication: HYPERTENSION
     Dates: start: 20200331, end: 20201122
  18. DIOCTAHEDRAL SMECTITE [Concomitant]
     Active Substance: MONTMORILLONITE
     Dates: start: 20201124, end: 20201126

REACTIONS (1)
  - Liver injury [Not Recovered/Not Resolved]

NARRATIVE: CASE EVENT DATE: 20201023
